FAERS Safety Report 23912424 (Version 1)
Quarter: 2024Q2

REPORT INFORMATION
  Report Type: Other
  Country: CN (occurrence: None)
  Receive Date: 20240528
  Receipt Date: 20240528
  Transmission Date: 20240716
  Serious: Yes (Hospitalization)
  Sender: FDA-Public Use
  Company Number: CN-MLMSERVICE-20240514-PI061984-00306-1

PATIENT
  Age: 53 Year
  Sex: Male

DRUGS (9)
  1. MYCOPHENOLATE MOFETIL [Suspect]
     Active Substance: MYCOPHENOLATE MOFETIL
     Indication: Prophylaxis against transplant rejection
     Dosage: MYCOPHENOLATE MOFETIL (MMF) 1 CAPSULE
     Route: 048
     Dates: end: 2022
  2. MYCOPHENOLATE MOFETIL [Suspect]
     Active Substance: MYCOPHENOLATE MOFETIL
     Dosage: MMF REMAINED AT ORIGINAL DOSAGE
     Route: 048
     Dates: start: 202208, end: 2022
  3. MYCOPHENOLATE MOFETIL [Suspect]
     Active Substance: MYCOPHENOLATE MOFETIL
     Route: 048
     Dates: start: 2011
  4. MYCOPHENOLATE MOFETIL [Suspect]
     Active Substance: MYCOPHENOLATE MOFETIL
     Dosage: MMF WAS ADJUSTED TO 1 CAPSULE
     Route: 048
     Dates: start: 2022
  5. TACROLIMUS [Suspect]
     Active Substance: TACROLIMUS
     Indication: Prophylaxis against transplant rejection
     Route: 065
  6. TACROLIMUS [Suspect]
     Active Substance: TACROLIMUS
     Route: 065
     Dates: start: 2011
  7. PREDNISONE [Suspect]
     Active Substance: PREDNISONE
     Indication: Prophylaxis against transplant rejection
     Route: 065
     Dates: start: 2011
  8. PREDNISONE [Suspect]
     Active Substance: PREDNISONE
     Route: 065
  9. ADEFOVIR DIPIVOXIL [Concomitant]
     Active Substance: ADEFOVIR DIPIVOXIL
     Indication: Hepatitis B

REACTIONS (18)
  - Gastrointestinal perforation [Unknown]
  - Burkholderia cepacia complex infection [Unknown]
  - Peritonitis [Unknown]
  - Multiple organ dysfunction syndrome [Unknown]
  - Parvovirus infection [Unknown]
  - Shock [Unknown]
  - Hepatic encephalopathy [Unknown]
  - Arthritis bacterial [Unknown]
  - Enterobacter infection [Unknown]
  - Penicillium infection [Unknown]
  - Herpes simplex [Unknown]
  - Gastrointestinal haemorrhage [Unknown]
  - Acute respiratory failure [Unknown]
  - Cytomegalovirus infection [Unknown]
  - Pseudomonas infection [Unknown]
  - Necrotising fasciitis [Unknown]
  - Soft tissue infection [Unknown]
  - Epstein-Barr virus infection [Unknown]

NARRATIVE: CASE EVENT DATE: 20210101
